FAERS Safety Report 16408612 (Version 1)
Quarter: 2019Q2

REPORT INFORMATION
  Report Type: Spontaneous
  Country: SI (occurrence: SI)
  Receive Date: 20190610
  Receipt Date: 20190610
  Transmission Date: 20190711
  Serious: Yes (Other)
  Sender: FDA-Public Use
  Company Number: SI-TEVA-2019-SI-1060055

PATIENT
  Age: 41 Year
  Sex: Female

DRUGS (5)
  1. PRENEWEL [Concomitant]
     Active Substance: INDAPAMIDE\PERINDOPRIL ERBUMINE
  2. ELTROXIN [Concomitant]
     Active Substance: LEVOTHYROXINE
     Dosage: ONE DAY 100MCG, THE NEXT DAY 150 MCGU
  3. ENDOXAN 1000 MG [Suspect]
     Active Substance: CYCLOPHOSPHAMIDE
     Indication: BREAST CANCER
     Dosage: POWDER FOR
     Route: 042
     Dates: start: 20190306, end: 20190306
  4. ALDIZEM 60 MG [Concomitant]
  5. EPIRUBICINIJEV KLORID PCH 2 MG/ML [Suspect]
     Active Substance: EPIRUBICIN HYDROCHLORIDE
     Indication: BREAST CANCER
     Dosage: OR INFUSION
     Dates: start: 20190306, end: 20190306

REACTIONS (3)
  - Glomerulonephritis [Not Recovered/Not Resolved]
  - Chronic kidney disease [Not Recovered/Not Resolved]
  - Febrile neutropenia [Not Recovered/Not Resolved]

NARRATIVE: CASE EVENT DATE: 20190306
